FAERS Safety Report 4285627-2 (Version None)
Quarter: 2004Q1

REPORT INFORMATION
  Report Type: 
  Country: None (occurrence: None)
  Receive Date: 20040203
  Receipt Date: 20040122
  Transmission Date: 20041129
  Serious: Yes (Hospitalization)
  Sender: FDA-Public Use
  Company Number: JP-JNJFOC-20031102332

PATIENT
  Age: 43 Year
  Sex: Female
  Weight: 62 kg

DRUGS (11)
  1. REMICADE [Suspect]
     Indication: RHEUMATOID ARTHRITIS
     Dosage: 3 MG/KG, 1 IN 1 AS NECESSARY, INTRAVENOUS DRIP
     Route: 041
     Dates: start: 20030821, end: 20030821
  2. REMICADE [Suspect]
     Indication: RHEUMATOID ARTHRITIS
     Dosage: 3 MG/KG, 1 IN 1 AS NECESSARY, INTRAVENOUS DRIP
     Route: 041
     Dates: start: 20030904, end: 20030904
  3. REMICADE [Suspect]
     Indication: RHEUMATOID ARTHRITIS
     Dosage: 3 MG/KG, 1 IN 1 AS NECESSARY, INTRAVENOUS DRIP
     Route: 041
     Dates: start: 20031002, end: 20031002
  4. LOXONIN (LOXOPROFEN SODIUM) TABLETS [Suspect]
     Indication: RHEUMATOID ARTHRITIS
     Dosage: 2 DOSE(S), IN1 DAY, ORAL
     Route: 048
     Dates: end: 20031029
  5. RHEUMATREX [Suspect]
     Indication: RHEUMATOID ARTHRITIS
     Dosage: 3 DOSE(S), IN 1 WEEK, ORAL; 2 DOSE(S), IN 1 WEEK, ORAL
     Route: 048
     Dates: start: 20000821, end: 20031016
  6. RHEUMATREX [Suspect]
     Indication: RHEUMATOID ARTHRITIS
     Dosage: 3 DOSE(S), IN 1 WEEK, ORAL; 2 DOSE(S), IN 1 WEEK, ORAL
     Route: 048
     Dates: start: 20031210
  7. ISONIAZID [Concomitant]
  8. PREDNISOLONE [Concomitant]
  9. ISCOTNI (ISONIAZID) TABLETS [Concomitant]
  10. PURSENNID (SENNA LEAF) TABLETS [Concomitant]
  11. FOLIAMIN (FOLIC ACID) TABLETS [Concomitant]

REACTIONS (8)
  - C-REACTIVE PROTEIN INCREASED [None]
  - DIARRHOEA [None]
  - DRUG INTERACTION [None]
  - ENTERITIS [None]
  - GASTRIC DISORDER [None]
  - HAEMORRHAGE [None]
  - INTESTINAL ISCHAEMIA [None]
  - MELAENA [None]
